FAERS Safety Report 18057406 (Version 3)
Quarter: 2020Q4

REPORT INFORMATION
  Report Type: Report from Study
  Country: None (occurrence: US)
  Receive Date: 20200723
  Receipt Date: 20201201
  Transmission Date: 20210113
  Serious: Yes (Hospitalization, Other)
  Sender: FDA-Public Use
  Company Number: US-ABBVIE-20K-163-3485022-00

PATIENT
  Age: 62 Year
  Sex: Female
  Weight: 57.2 kg

DRUGS (24)
  1. OSPHENA [Concomitant]
     Active Substance: OSPEMIFENE
     Indication: FEMALE REPRODUCTIVE TRACT DISORDER
  2. VALSARTAN. [Concomitant]
     Active Substance: VALSARTAN
     Indication: HYPERTENSION
  3. METHOTREXATE. [Concomitant]
     Active Substance: METHOTREXATE
     Dosage: REDUCED DOSE
  4. LEUCOVORIN. [Concomitant]
     Active Substance: LEUCOVORIN
     Indication: GASTRIC DISORDER
  5. DYMISTA [Concomitant]
     Active Substance: AZELASTINE HYDROCHLORIDE\FLUTICASONE PROPIONATE
     Indication: HYPERSENSITIVITY
  6. SYMBICORT [Concomitant]
     Active Substance: BUDESONIDE\FORMOTEROL FUMARATE DIHYDRATE
     Indication: PULMONARY VASCULITIS
     Dosage: 80/4.5 MCG, 2 TIMES DAILY
  7. DYNASTAT [Concomitant]
     Active Substance: PARECOXIB SODIUM
     Indication: HYPERSENSITIVITY
  8. HUMIRA [Suspect]
     Active Substance: ADALIMUMAB
     Indication: ANKYLOSING SPONDYLITIS
     Route: 058
     Dates: start: 20191211
  9. HUMIRA [Suspect]
     Active Substance: ADALIMUMAB
     Indication: ANKYLOSING SPONDYLITIS
     Dosage: CITRATE FREE
     Route: 058
     Dates: start: 20191211
  10. METHOTREXATE. [Concomitant]
     Active Substance: METHOTREXATE
     Dosage: INCREASED DOE
  11. LOSARTAN. [Concomitant]
     Active Substance: LOSARTAN
     Indication: GASTROINTESTINAL DISORDER
  12. OSPHENA [Concomitant]
     Active Substance: OSPEMIFENE
     Indication: MENOPAUSE
  13. METHOTREXATE. [Concomitant]
     Active Substance: METHOTREXATE
     Indication: VASCULITIS
  14. HYDROXYCHLOROQUINE [Concomitant]
     Active Substance: HYDROXYCHLOROQUINE
     Indication: VASCULITIS
  15. VITAMIN D [Concomitant]
     Active Substance: VITAMIN D NOS
     Indication: SUPPLEMENTATION THERAPY
  16. LEUCOVORIN. [Concomitant]
     Active Substance: LEUCOVORIN
     Indication: HYPERTENSION
  17. PLAQUENIL [Concomitant]
     Active Substance: HYDROXYCHLOROQUINE SULFATE
     Indication: URTICARIAL VASCULITIS
  18. PATADAY [Concomitant]
     Active Substance: OLOPATADINE HYDROCHLORIDE
     Indication: HYPERSENSITIVITY
  19. AMITRIPTYLINE [Concomitant]
     Active Substance: AMITRIPTYLINE
     Indication: PRODUCT USED FOR UNKNOWN INDICATION
  20. XIVAL [Concomitant]
     Indication: HYPERSENSITIVITY
  21. XYZAL [Concomitant]
     Active Substance: LEVOCETIRIZINE DIHYDROCHLORIDE
     Indication: HYPERSENSITIVITY
  22. SYMBICORT [Concomitant]
     Active Substance: BUDESONIDE\FORMOTEROL FUMARATE DIHYDRATE
     Indication: OBSTRUCTIVE AIRWAYS DISORDER
  23. AMITRIPTYLINE [Concomitant]
     Active Substance: AMITRIPTYLINE
     Indication: INSOMNIA
     Dosage: NIGHTLY
  24. AMITRIPTYLINE [Concomitant]
     Active Substance: AMITRIPTYLINE
     Indication: BLADDER SPASM

REACTIONS (19)
  - Ocular hyperaemia [Not Recovered/Not Resolved]
  - Migraine with aura [Recovered/Resolved]
  - Injection site pruritus [Recovering/Resolving]
  - Halo vision [Not Recovered/Not Resolved]
  - Feeling hot [Unknown]
  - Injection site erythema [Recovering/Resolving]
  - Cerebral haemorrhage [Not Recovered/Not Resolved]
  - Cellulitis [Unknown]
  - Injection site papule [Not Recovered/Not Resolved]
  - Fatigue [Not Recovered/Not Resolved]
  - Nervous system disorder [Not Recovered/Not Resolved]
  - Pruritus [Recovering/Resolving]
  - Urticarial vasculitis [Not Recovered/Not Resolved]
  - Dyspepsia [Recovering/Resolving]
  - Injection site warmth [Recovering/Resolving]
  - Vasculitis [Not Recovered/Not Resolved]
  - Arthralgia [Recovered/Resolved]
  - Impaired driving ability [Not Recovered/Not Resolved]
  - Vein disorder [Not Recovered/Not Resolved]

NARRATIVE: CASE EVENT DATE: 20200208
